FAERS Safety Report 22381379 (Version 2)
Quarter: 2023Q2

REPORT INFORMATION
  Report Type: Report from Study
  Country: US (occurrence: US)
  Receive Date: 20230530
  Receipt Date: 20230531
  Transmission Date: 20230722
  Serious: No
  Sender: FDA-Public Use
  Company Number: US-002147023-NVSC2023US121156

PATIENT
  Sex: Female

DRUGS (4)
  1. KETOCONAZOLE [Suspect]
     Active Substance: KETOCONAZOLE
     Indication: Psoriasis
     Route: 065
  2. SPIRONOLACTONE [Suspect]
     Active Substance: SPIRONOLACTONE
     Indication: Psoriasis
     Route: 065
  3. ELIDEL [Suspect]
     Active Substance: PIMECROLIMUS
     Indication: Psoriasis
     Route: 061
  4. ELIDEL [Suspect]
     Active Substance: PIMECROLIMUS
     Indication: Rash pruritic

REACTIONS (7)
  - Rash pruritic [Unknown]
  - Nodule [Unknown]
  - Pustule [Unknown]
  - Tinea pedis [Unknown]
  - Papule [Unknown]
  - Acne [Unknown]
  - Drug effect less than expected [Unknown]
